FAERS Safety Report 18734789 (Version 3)
Quarter: 2021Q1

REPORT INFORMATION
  Report Type: Spontaneous
  Country: JP (occurrence: JP)
  Receive Date: 20210113
  Receipt Date: 20210302
  Transmission Date: 20210419
  Serious: Yes (Other)
  Sender: FDA-Public Use
  Company Number: JP-009507513-2101JPN000546J

PATIENT
  Age: 40 Year
  Sex: Male

DRUGS (8)
  1. OXYCODONE HYDROCHLORIDE HYDRATE [Concomitant]
     Active Substance: OXYCODONE HYDROCHLORIDE
     Indication: RENAL IMPAIRMENT
     Dosage: 5?20 MILLIGRAM
     Route: 065
  2. CERCINE [Concomitant]
     Active Substance: DIAZEPAM
     Dosage: 9 MILLIGRAM
     Route: 065
  3. ROZEREM [Concomitant]
     Active Substance: RAMELTEON
     Dosage: 2?8 MILLIGRAM
     Route: 065
  4. REFLEX [Suspect]
     Active Substance: MIRTAZAPINE
     Dosage: 3.75?7.5 MILLIGRAM
     Route: 048
  5. MORPHINE HYDROCHLORIDE HYDRATE [Concomitant]
     Active Substance: MORPHINE HYDROCHLORIDE
     Dosage: 5?15 MILLIGRAM
     Route: 065
  6. ACETAMINOPHEN. [Concomitant]
     Active Substance: ACETAMINOPHEN
     Indication: PAIN MANAGEMENT
     Dosage: 0.9?1.2GRAM
     Route: 065
  7. LYRICA [Concomitant]
     Active Substance: PREGABALIN
     Dosage: 25?75 MILLIGRAM
     Route: 065
  8. DULOXETINE HYDROCHLORIDE. [Concomitant]
     Active Substance: DULOXETINE HYDROCHLORIDE
     Dosage: UNK
     Route: 065

REACTIONS (1)
  - Respiratory depression [Unknown]
